FAERS Safety Report 9710116 (Version 3)
Quarter: 2013Q4

REPORT INFORMATION
  Report Type: Report from Study
  Country: US (occurrence: US)
  Receive Date: 20131126
  Receipt Date: 20131216
  Transmission Date: 20140711
  Serious: Yes (Disabling)
  Sender: FDA-Public Use
  Company Number: PHEH2013US022372

PATIENT
  Age: 55 Year
  Sex: Female
  Weight: 83.9 kg

DRUGS (6)
  1. GILENYA [Suspect]
     Indication: MULTIPLE SCLEROSIS
     Dosage: 0.5 MG, QD
     Route: 048
     Dates: start: 20130829
  2. FISH OIL [Concomitant]
     Dosage: 600 MG, QID
     Dates: start: 20101130
  3. ALEVE [Concomitant]
     Dosage: 220 MG, UNK
  4. TIZANIDINE [Concomitant]
     Dosage: 1 DF, TID
     Route: 048
     Dates: start: 20121031
  5. LOSARTAN [Concomitant]
     Dosage: 100 MG, UNK
     Route: 048
  6. CRESTOR [Concomitant]
     Dosage: 1 DF, UNK
     Route: 048
     Dates: start: 20100310

REACTIONS (26)
  - Cognitive disorder [Not Recovered/Not Resolved]
  - Concomitant disease aggravated [Not Recovered/Not Resolved]
  - Red cell distribution width increased [Unknown]
  - Eosinophil count decreased [Unknown]
  - Blood glucose increased [Unknown]
  - Blood bilirubin increased [Unknown]
  - Communication disorder [Unknown]
  - High density lipoprotein decreased [Unknown]
  - Temperature intolerance [Unknown]
  - Urinary retention [Unknown]
  - Executive dysfunction [Unknown]
  - Low density lipoprotein increased [Unknown]
  - Alopecia [Not Recovered/Not Resolved]
  - Blood triglycerides increased [Unknown]
  - Multiple sclerosis relapse [Unknown]
  - Fatigue [Unknown]
  - Disturbance in attention [Unknown]
  - Vision blurred [Unknown]
  - Paraesthesia [Unknown]
  - Back pain [Unknown]
  - Memory impairment [Unknown]
  - Hypoaesthesia [Unknown]
  - Neutrophil count increased [Unknown]
  - Lymphocyte count decreased [Unknown]
  - Blood alkaline phosphatase increased [Unknown]
  - Blood pressure increased [Unknown]
